FAERS Safety Report 18340206 (Version 1)
Quarter: 2020Q4

REPORT INFORMATION
  Report Type: Spontaneous
  Country: JP (occurrence: JP)
  Receive Date: 20201002
  Receipt Date: 20201002
  Transmission Date: 20210113
  Serious: Yes (Hospitalization, Other)
  Sender: FDA-Public Use
  Company Number: JP-ASTRAZENECA-2020SF26046

PATIENT
  Age: 69 Year
  Sex: Female
  Weight: 47 kg

DRUGS (4)
  1. PITAVASTATIN CA OD [Concomitant]
     Active Substance: PITAVASTATIN CALCIUM
     Indication: DYSLIPIDAEMIA
     Route: 048
     Dates: start: 20160217
  2. IMFINZI [Suspect]
     Active Substance: DURVALUMAB
     Indication: NON-SMALL CELL LUNG CANCER
     Route: 041
     Dates: start: 20200408, end: 20200702
  3. CINAL [Concomitant]
     Indication: SKIN ULCER
     Route: 048
     Dates: start: 20170509
  4. ETHYL ICOSAPENTATE [Concomitant]
     Active Substance: ICOSAPENT ETHYL
     Indication: DYSLIPIDAEMIA
     Route: 048
     Dates: start: 20170710

REACTIONS (1)
  - Optic ischaemic neuropathy [Unknown]
